FAERS Safety Report 8912652 (Version 1)
Quarter: 2012Q4

REPORT INFORMATION
  Report Type: 
  Country: US (occurrence: US)
  Receive Date: 20121116
  Receipt Date: 20121116
  Transmission Date: 20130627
  Serious: Yes (Other)
  Sender: FDA-Public Use
  Company Number: US-ARROW-2012-19148

PATIENT
  Age: 55 Year
  Sex: Female
  Weight: 70 kg

DRUGS (4)
  1. SULINDAC [Suspect]
     Indication: PLANTAR FASCIITIS
     Dosage: 1 tab BID
     Route: 048
     Dates: start: 20120323, end: 20120324
  2. PREDNISONE (WATSON LABORATORIES) [Suspect]
     Indication: HYPERSENSITIVITY
     Dosage: UNK, PO
     Route: 048
     Dates: start: 20120324
  3. BENADRYL                           /00000402/ [Suspect]
     Indication: PRURITUS
     Dosage: UNK, unknown
     Route: 048
     Dates: start: 20120323
  4. BENADRYL                           /00000402/ [Suspect]
     Indication: ERYTHEMA

REACTIONS (16)
  - Eyelid oedema [Recovered/Resolved]
  - Hypersensitivity [Recovered/Resolved]
  - Burning sensation [Recovered/Resolved]
  - Pruritus generalised [Recovered/Resolved]
  - Rash generalised [Recovered/Resolved]
  - Contusion [Recovered/Resolved]
  - Pain [Recovered/Resolved]
  - Scar [Not Recovered/Not Resolved]
  - Skin discolouration [Not Recovered/Not Resolved]
  - Anxiety [Not Recovered/Not Resolved]
  - Visual impairment [Not Recovered/Not Resolved]
  - Eye irritation [Not Recovered/Not Resolved]
  - Dry eye [Not Recovered/Not Resolved]
  - Ocular hyperaemia [Not Recovered/Not Resolved]
  - Insomnia [Unknown]
  - Eye disorder [Unknown]
